FAERS Safety Report 4603933-6 (Version None)
Quarter: 2005Q1

REPORT INFORMATION
  Report Type: 
  Country: None (occurrence: None)
  Receive Date: 20050310
  Receipt Date: 20050304
  Transmission Date: 20050727
  Serious: Yes (Hospitalization)
  Sender: FDA-Public Use
  Company Number: US-GLAXOSMITHKLINE-A0548389A

PATIENT
  Age: 72 Year
  Sex: Female

DRUGS (8)
  1. ADVAIR DISKUS 100/50 [Suspect]
     Indication: ASTHMA
     Dosage: 1PUFF TWICE PER DAY
     Route: 055
     Dates: start: 20030101
  2. OXYBUTYNIN [Concomitant]
  3. OMEPRAZOLE [Concomitant]
  4. KLOR-CON [Concomitant]
  5. TRIAMTERENE [Concomitant]
  6. AVANDIA [Concomitant]
     Dates: start: 20041001
  7. XALATAN [Concomitant]
  8. TRUSOPT [Concomitant]

REACTIONS (3)
  - HIP ARTHROPLASTY [None]
  - LACERATION [None]
  - STRESS [None]
